FAERS Safety Report 16735839 (Version 1)
Quarter: 2019Q3

REPORT INFORMATION
  Report Type: Spontaneous
  Country: US (occurrence: US)
  Receive Date: 20190708
  Receipt Date: 20190708
  Transmission Date: 20191005
  Serious: No
  Sender: FDA-Public Use
  Company Number: None

PATIENT
  Age: 66 Year
  Sex: Male

DRUGS (1)
  1. PREDNISONE 5MG TAB WATSON [Suspect]
     Active Substance: PREDNISONE
     Dates: start: 201807

REACTIONS (3)
  - Abdominal distension [None]
  - Flatulence [None]
  - Insomnia [None]

NARRATIVE: CASE EVENT DATE: 20190708
